FAERS Safety Report 17191258 (Version 1)
Quarter: 2019Q4

REPORT INFORMATION
  Report Type: Spontaneous
  Country: FR (occurrence: FR)
  Receive Date: 20191223
  Receipt Date: 20191223
  Transmission Date: 20200122
  Serious: Yes (Other)
  Sender: FDA-Public Use
  Company Number: FR-PFIZER INC-2019545183

PATIENT
  Age: 25 Year
  Sex: Female

DRUGS (7)
  1. ALPRAZOLAM. [Concomitant]
     Active Substance: ALPRAZOLAM
     Dosage: UNK
  2. KLIPAL CODEINE [Suspect]
     Active Substance: ACETAMINOPHEN\CODEINE PHOSPHATE
     Indication: DRUG USE DISORDER
     Dosage: 5 DF, 1X/DAY
     Route: 048
     Dates: start: 2019
  3. PRONTALGINE [CAFFEINE;CODEINE PHOSPHATE HEMIHYDRATE;PARACETAMOL] [Suspect]
     Active Substance: ACETAMINOPHEN\CAFFEINE\CODEINE
     Indication: DRUG USE DISORDER
     Dosage: 5 DF, 1X/DAY
     Route: 048
     Dates: start: 2019
  4. NAUTAMINE [Concomitant]
     Active Substance: BIETANAUTINE
     Dosage: UNK
  5. DONORMYL [DOXYLAMINE SUCCINATE] [Concomitant]
     Active Substance: DOXYLAMINE SUCCINATE
     Dosage: UNK
  6. IBUPROFEN. [Suspect]
     Active Substance: IBUPROFEN
     Indication: HEADACHE
     Dosage: 1600 MG, DAILY
     Route: 048
     Dates: start: 2019
  7. OMEPRAZOLE. [Concomitant]
     Active Substance: OMEPRAZOLE
     Dosage: UNK

REACTIONS (1)
  - Drug use disorder [Not Recovered/Not Resolved]

NARRATIVE: CASE EVENT DATE: 2019
